FAERS Safety Report 4346956-7 (Version None)
Quarter: 2004Q1

REPORT INFORMATION
  Report Type: 
  Country: None (occurrence: None)
  Receive Date: 20040329
  Receipt Date: 20031215
  Transmission Date: 20041129
  Serious: No
  Sender: FDA-Public Use
  Company Number: USA031254732

PATIENT
  Age: 50 Year
  Sex: Female
  Weight: 39 kg

DRUGS (3)
  1. STRATTERA [Suspect]
     Indication: ATTENTION DEFICIT/HYPERACTIVITY DISORDER
     Dosage: 40 MG/DAY
     Dates: start: 20031212
  2. STRATTERA [Suspect]
     Indication: FATIGUE
     Dosage: 40 MG/DAY
     Dates: start: 20031212
  3. DICLOFENAC SODIUM [Concomitant]

REACTIONS (3)
  - FATIGUE [None]
  - HYPERSOMNIA [None]
  - NAUSEA [None]
